FAERS Safety Report 4886001-8 (Version None)
Quarter: 2006Q1

REPORT INFORMATION
  Report Type: 
  Country: None (occurrence: None)
  Receive Date: 20060117
  Receipt Date: 20060102
  Transmission Date: 20060701
  Serious: Yes (Disabling, Other)
  Sender: FDA-Public Use
  Company Number: 12987

PATIENT
  Age: 58 Year
  Sex: Female
  Weight: 58 kg

DRUGS (3)
  1. NOVOPLATINUM [Suspect]
     Indication: BREAST CANCER
     Dosage: 336 MG DAILY IV
     Route: 042
     Dates: start: 20051020, end: 20051020
  2. ONDANSETRON [Concomitant]
  3. VINDESINE [Concomitant]

REACTIONS (6)
  - BREAST CANCER [None]
  - ERYTHEMA [None]
  - GASTROINTESTINAL HAEMORRHAGE [None]
  - HYPERHIDROSIS [None]
  - HYPERTENSIVE CRISIS [None]
  - NEOPLASM RECURRENCE [None]
